FAERS Safety Report 9182206 (Version 1)
Quarter: 2012Q4

REPORT INFORMATION
  Report Type: 
  Country: US (occurrence: US)
  Receive Date: 20121030
  Receipt Date: 20121030
  Transmission Date: 20130627
  Serious: No
  Sender: FDA-Public Use
  Company Number: US-GLAXOSMITHKLINE-A0948484A

PATIENT
  Age: 47 Year
  Sex: Female

DRUGS (8)
  1. SEREVENT [Suspect]
     Indication: ASTHMA
     Dosage: 60PUFF Twice per day
     Route: 055
     Dates: start: 20110911, end: 20110918
  2. ASMANEX [Concomitant]
  3. FLONASE [Concomitant]
  4. SINGULAR [Concomitant]
  5. PRO-AIR [Concomitant]
  6. ALBUTEROL NEBULIZER [Concomitant]
  7. IPRATROPIUM BROMIDE [Concomitant]
  8. LISINOPRIL [Concomitant]

REACTIONS (4)
  - Chest discomfort [Recovering/Resolving]
  - Dyspnoea [Unknown]
  - Asthenia [Unknown]
  - Drug ineffective [Unknown]
